FAERS Safety Report 10465391 (Version 3)
Quarter: 2014Q4

REPORT INFORMATION
  Report Type: Spontaneous
  Country: FR (occurrence: FR)
  Receive Date: 20140919
  Receipt Date: 20141224
  Transmission Date: 20150528
  Serious: Yes (Other)
  Sender: FDA-Public Use
  Company Number: FR-PFIZER INC-2014256634

PATIENT
  Age: 28 Year
  Sex: Female

DRUGS (3)
  1. ZOLOFT [Suspect]
     Active Substance: SERTRALINE HYDROCHLORIDE
     Indication: GENERALISED ANXIETY DISORDER
     Dosage: 25 MG, ALTERNATE DAY
     Route: 048
     Dates: start: 20140110, end: 2014
  2. SERTRALINE [Suspect]
     Active Substance: SERTRALINE HYDROCHLORIDE
     Indication: GENERALISED ANXIETY DISORDER
     Dosage: UNK
     Route: 048
     Dates: end: 20140110
  3. ZOLOFT [Suspect]
     Active Substance: SERTRALINE HYDROCHLORIDE
     Dosage: 50 MG, ALTERNATE DAY
     Route: 048
     Dates: start: 2014, end: 20140827

REACTIONS (3)
  - Transaminases increased [Recovered/Resolved]
  - Gestational diabetes [Unknown]
  - Leukocyte alkaline phosphatase increased [Recovered/Resolved]

NARRATIVE: CASE EVENT DATE: 2014
